FAERS Safety Report 5741241-0 (Version None)
Quarter: 2008Q2

REPORT INFORMATION
  Report Type: 
  Country: None (occurrence: None)
  Receive Date: 20080514
  Receipt Date: 20080430
  Transmission Date: 20081010
  Serious: Yes (Death)
  Sender: FDA-Public Use
  Company Number: 2008AL003020

PATIENT
  Age: 75 Year
  Sex: Male

DRUGS (1)
  1. DIGOXIN [Suspect]
     Dates: start: 20080318, end: 20080404

REACTIONS (3)
  - ANOREXIA [None]
  - DIZZINESS [None]
  - GAIT DISTURBANCE [None]
